FAERS Safety Report 23221501 (Version 1)
Quarter: 2023Q4

REPORT INFORMATION
  Report Type: Spontaneous
  Country: US (occurrence: US)
  Receive Date: 20231123
  Receipt Date: 20231123
  Transmission Date: 20240110
  Serious: No
  Sender: FDA-Public Use
  Company Number: US-GSK-US2023160703

PATIENT
  Age: 76 Year
  Sex: Female

DRUGS (1)
  1. TRELEGY ELLIPTA [Suspect]
     Active Substance: FLUTICASONE FUROATE\UMECLIDINIUM BROMIDE\VILANTEROL TRIFENATATE
     Indication: Asthma-chronic obstructive pulmonary disease overlap syndrome
     Dosage: UNK, TRELEGY ELLIPTA 200-62.5MCG INH 30PUSE 1 INHALATION BY MOUTH DAILY
     Route: 055
     Dates: start: 202212

REACTIONS (1)
  - Back injury [Unknown]

NARRATIVE: CASE EVENT DATE: 20231110
